FAERS Safety Report 12374779 (Version 1)
Quarter: 2016Q2

REPORT INFORMATION
  Report Type: Spontaneous
  Country: US (occurrence: None)
  Receive Date: 20160516
  Receipt Date: 20160516
  Transmission Date: 20160815
  Serious: Yes (Disabling)
  Sender: FDA-Public Use
  Company Number: None

PATIENT
  Age: 52 Year
  Sex: Male
  Weight: 72.58 kg

DRUGS (10)
  1. NAPROSYN [Concomitant]
     Active Substance: NAPROXEN
  2. GLUCOSAMINE/CHONDROITIN /08437701/ [Concomitant]
     Active Substance: CHONDROITIN SULFATE (BOVINE)\GLUCOSAMINE SULFATE
  3. CIPROFLOXACIN, 500MG BAYER [Suspect]
     Active Substance: CIPROFLOXACIN
     Indication: KIDNEY INFECTION
     Route: 048
     Dates: start: 20160123, end: 20160215
  4. HYDROCHLOROTHIAZIDE. [Concomitant]
     Active Substance: HYDROCHLOROTHIAZIDE
  5. VITAMIN C [Concomitant]
     Active Substance: ASCORBIC ACID
  6. OMEGA 3-6-9 [Concomitant]
     Active Substance: FISH OIL
  7. SYNTHROID [Concomitant]
     Active Substance: LEVOTHYROXINE SODIUM
  8. MULTIVITAMIN [Concomitant]
     Active Substance: VITAMINS
  9. CIPROFLOXACIN, 500MG BAYER [Suspect]
     Active Substance: CIPROFLOXACIN
     Indication: PROSTATITIS
     Route: 048
     Dates: start: 20160123, end: 20160215
  10. CRANBERRY. [Concomitant]
     Active Substance: CRANBERRY

REACTIONS (5)
  - Pain in extremity [None]
  - Inguinal hernia [None]
  - Tic [None]
  - Therapy cessation [None]
  - Tendon pain [None]

NARRATIVE: CASE EVENT DATE: 20160215
